FAERS Safety Report 6095531-5 (Version None)
Quarter: 2009Q1

REPORT INFORMATION
  Report Type: 
  Country: None (occurrence: None)
  Receive Date: 20090227
  Receipt Date: 20080422
  Transmission Date: 20090719
  Serious: Yes (Other)
  Sender: FDA-Public Use
  Company Number: A0724094A

PATIENT
  Age: 36 Year
  Sex: Female

DRUGS (3)
  1. LAMICTAL [Suspect]
     Dosage: 300MG TWICE PER DAY
     Route: 048
     Dates: start: 20060101
  2. CLONAZEPAM [Concomitant]
  3. MICROGESTIN 1.5/30 [Concomitant]

REACTIONS (11)
  - ACCIDENTAL OVERDOSE [None]
  - CONVULSION [None]
  - DIZZINESS [None]
  - DYSARTHRIA [None]
  - DYSPNOEA [None]
  - GAIT DISTURBANCE [None]
  - ILL-DEFINED DISORDER [None]
  - RASH [None]
  - STOMATITIS [None]
  - SYNCOPE [None]
  - TREMOR [None]
